FAERS Safety Report 8896432 (Version 1)
Quarter: 2012Q4

REPORT INFORMATION
  Report Type: Spontaneous
  Country: US (occurrence: None)
  Receive Date: 20121107
  Receipt Date: 20121107
  Transmission Date: 20130627
  Serious: Yes (Other)
  Sender: FDA-Public Use
  Company Number: None

PATIENT
  Age: 56 Year
  Sex: Female
  Weight: 68.04 kg

DRUGS (1)
  1. ESCITALOPRAM [Suspect]

REACTIONS (5)
  - Depressed mood [None]
  - Condition aggravated [None]
  - Decreased interest [None]
  - Suicidal ideation [None]
  - Product substitution issue [None]
